FAERS Safety Report 5207964-7 (Version None)
Quarter: 2007Q1

REPORT INFORMATION
  Report Type: 
  Country: None (occurrence: None)
  Receive Date: 20070115
  Receipt Date: 20070109
  Transmission Date: 20070707
  Serious: Yes (Hospitalization)
  Sender: FDA-Public Use
  Company Number: US-ELI_LILLY_AND_COMPANY-US200609003635

PATIENT
  Age: 41 Year
  Sex: Male
  Weight: 117 kg

DRUGS (1)
  1. ZYPREXA [Suspect]
     Indication: DEPRESSION
     Dosage: 15 MG, DAILY (1/D)
     Dates: start: 19990301, end: 20050701

REACTIONS (2)
  - DIABETES MELLITUS [None]
  - MYOCARDIAL INFARCTION [None]
